FAERS Safety Report 16047576 (Version 2)
Quarter: 2019Q1

REPORT INFORMATION
  Report Type: Spontaneous
  Country: IT (occurrence: IT)
  Receive Date: 20190307
  Receipt Date: 20190312
  Transmission Date: 20190418
  Serious: Yes (Other)
  Sender: FDA-Public Use
  Company Number: IT-MYLANLABS-2019M1020948

PATIENT
  Age: 2 Year
  Sex: Male

DRUGS (2)
  1. PREDNISONE. [Suspect]
     Active Substance: PREDNISONE
     Indication: NEPHROTIC SYNDROME
     Dosage: 60 MILLIGRAM/SQ. METER, QD
  2. PREDNISONE. [Suspect]
     Active Substance: PREDNISONE
     Dosage: DOSE TAPERED

REACTIONS (3)
  - Rebound effect [Unknown]
  - Nephrotic syndrome [Unknown]
  - Drug abuse [Unknown]
